FAERS Safety Report 9380818 (Version 2)
Quarter: 2013Q3

REPORT INFORMATION
  Report Type: Spontaneous
  Country: US (occurrence: US)
  Receive Date: 20130702
  Receipt Date: 20130807
  Transmission Date: 20140515
  Serious: Yes (Other)
  Sender: FDA-Public Use
  Company Number: US-RB-055444-13

PATIENT
  Age: 63 Year
  Sex: Female

DRUGS (10)
  1. SUBOXONE FILM [Suspect]
     Indication: DRUG DEPENDENCE
     Dosage: SUBOXONE FILM
     Route: 060
     Dates: start: 201008
  2. SUBOXONE FILM [Suspect]
     Dosage: SUBOXONE FILM;  MANY DAYS TAKES 8 MG/DAILY; PRESCRIBED 12 MG
     Route: 060
  3. SUBOXONE FILM [Suspect]
     Dosage: SUBOXONE FILM; TAKING 1 AND A HALF STIPS DAILY
     Route: 065
  4. LORAZEPAM [Suspect]
     Indication: RESTLESSNESS
     Route: 048
     Dates: end: 201306
  5. TRAZODONE [Concomitant]
     Indication: SLEEP DISORDER
     Dosage: AS NEEDED
     Route: 048
  6. HYDROCHLOROTHIAZIDE [Concomitant]
     Indication: DIURETIC THERAPY
     Route: 048
  7. AMPHETAMINE [Concomitant]
     Indication: WEIGHT CONTROL
     Route: 048
  8. LEVOTHYROXINE [Concomitant]
     Indication: THYROID DISORDER
     Route: 048
  9. PANCREASE [Concomitant]
     Indication: PANCREATITIS
     Dosage: 3 TABLETS DAILY
     Route: 048
  10. TYLENOL PM [Concomitant]
     Indication: SLEEP DISORDER
     Dosage: AS NEEDED
     Route: 048

REACTIONS (15)
  - Loss of consciousness [Recovered/Resolved]
  - Laceration [Not Recovered/Not Resolved]
  - Dysstasia [Not Recovered/Not Resolved]
  - Wrong technique in drug usage process [Not Recovered/Not Resolved]
  - Underdose [Recovered/Resolved]
  - Weight increased [Not Recovered/Not Resolved]
  - Dizziness [Recovered/Resolved]
  - Fall [Recovered/Resolved]
  - Pain in extremity [Not Recovered/Not Resolved]
  - Urinary incontinence [Not Recovered/Not Resolved]
  - Hypertonic bladder [Not Recovered/Not Resolved]
  - Muscle twitching [Not Recovered/Not Resolved]
  - Restlessness [Not Recovered/Not Resolved]
  - Road traffic accident [Recovered/Resolved]
  - Memory impairment [Recovered/Resolved]
